FAERS Safety Report 20235184 (Version 1)
Quarter: 2021Q4

REPORT INFORMATION
  Report Type: Spontaneous
  Country: RU (occurrence: RU)
  Receive Date: 20211227
  Receipt Date: 20211227
  Transmission Date: 20220304
  Serious: Yes (Congenital Anomaly)
  Sender: FDA-Public Use
  Company Number: RU-TEVA-2021-RU-1987810

PATIENT

DRUGS (1)
  1. BISOPROLOL [Suspect]
     Active Substance: BISOPROLOL
     Indication: Ankylosing spondylitis
     Route: 064

REACTIONS (4)
  - Heart disease congenital [Not Recovered/Not Resolved]
  - Atrial septal defect [Not Recovered/Not Resolved]
  - Cardiac failure [Not Recovered/Not Resolved]
  - Foetal exposure during pregnancy [Unknown]
